FAERS Safety Report 24439904 (Version 1)
Quarter: 2024Q4

REPORT INFORMATION
  Report Type: Spontaneous
  Country: US (occurrence: US)
  Receive Date: 20241015
  Receipt Date: 20241015
  Transmission Date: 20250114
  Serious: No
  Sender: BRACCO
  Company Number: US-BRACCO-2024US04406

PATIENT
  Age: 76 Year

DRUGS (1)
  1. VUEWAY [Suspect]
     Active Substance: GADOPICLENOL
     Indication: Magnetic resonance imaging abdominal
     Dosage: 7 ML, SINGLE
     Route: 042
     Dates: start: 20240713, end: 20240713

REACTIONS (1)
  - Burning sensation [Recovered/Resolved]

NARRATIVE: CASE EVENT DATE: 20240713
